FAERS Safety Report 4711921-4 (Version None)
Quarter: 2005Q3

REPORT INFORMATION
  Report Type: 
  Country: None (occurrence: None)
  Receive Date: 20050711
  Receipt Date: 20050711
  Transmission Date: 20060218
  Serious: Yes (Death, Life-Threatening)
  Sender: FDA-Public Use
  Company Number: None

PATIENT
  Age: 43 Year
  Sex: Female
  Weight: 54.8852 kg

DRUGS (6)
  1. ALTEPLASE (TPA 30 MG/350 ML @ 1 MG/HR) [Suspect]
     Indication: ARTERIAL THROMBOSIS
     Dosage: 30 MG/350 ML @ 1 MG/HR
     Dates: start: 20050608, end: 20050609
  2. HEPARIN [Suspect]
     Dosage: 1000 UNITS /1HR
     Dates: start: 20050608, end: 20050609
  3. LISINOPRIL [Concomitant]
  4. AZATHIOPRINE [Concomitant]
  5. PREDNISONE [Concomitant]
  6. NOREPINEPHRINE [Concomitant]

REACTIONS (4)
  - BRAIN DEATH [None]
  - HAEMORRHAGE INTRACRANIAL [None]
  - HYPERTENSION [None]
  - VOMITING [None]
